FAERS Safety Report 12639881 (Version 18)
Quarter: 2017Q3

REPORT INFORMATION
  Report Type: Spontaneous
  Country: US (occurrence: US)
  Receive Date: 20160810
  Receipt Date: 20170913
  Transmission Date: 20171127
  Serious: Yes (Congenital Anomaly, Other)
  Sender: FDA-Public Use
  Company Number: PHEH2016US019862

PATIENT
  Sex: Female

DRUGS (3)
  1. ZOFRAN [Suspect]
     Active Substance: ONDANSETRON HYDROCHLORIDE
     Indication: FOETAL EXPOSURE DURING PREGNANCY
     Route: 064
  2. ZOFRAN [Suspect]
     Active Substance: ONDANSETRON HYDROCHLORIDE
     Indication: FOETAL EXPOSURE DURING PREGNANCY
     Route: 064
  3. ONDANSETRON HYDROCHLORIDE SANDOZ [Suspect]
     Active Substance: ONDANSETRON HYDROCHLORIDE
     Indication: FOETAL EXPOSURE DURING PREGNANCY
     Dosage: MOTHER DOSE: 4 MG, QD
     Route: 064

REACTIONS (26)
  - Neonatal hyponatraemia [Unknown]
  - Pyrexia [Unknown]
  - Pneumocystis jirovecii pneumonia [Unknown]
  - Dermatitis [Unknown]
  - Foetal exposure during pregnancy [Unknown]
  - Injury [Unknown]
  - Eczema [Unknown]
  - Cardiomegaly [Unknown]
  - Otitis media [Unknown]
  - Left-to-right cardiac shunt [Unknown]
  - Neonatal respiratory distress syndrome [Unknown]
  - Cardiac murmur [Unknown]
  - Transient tachypnoea of the newborn [Unknown]
  - Jaundice neonatal [Unknown]
  - Umbilical hernia [Unknown]
  - Cough [Unknown]
  - Tonsillitis [Unknown]
  - Eustachian tube dysfunction [Unknown]
  - Atrial septal defect [Unknown]
  - Pharyngitis [Unknown]
  - Rhinitis [Unknown]
  - Congenital anomaly [Unknown]
  - Premature baby [Unknown]
  - Asthma [Unknown]
  - Ear pain [Unknown]
  - Upper respiratory tract infection [Unknown]
